FAERS Safety Report 19880022 (Version 1)
Quarter: 2021Q3

REPORT INFORMATION
  Report Type: Spontaneous
  Country: US (occurrence: US)
  Receive Date: 20210924
  Receipt Date: 20210924
  Transmission Date: 20211014
  Serious: No
  Sender: FDA-Public Use
  Company Number: US-JNJFOC-20210921620

PATIENT
  Sex: Female

DRUGS (1)
  1. WOMENS ROGAINE UNSCENTED [Suspect]
     Active Substance: MINOXIDIL
     Indication: ALOPECIA
     Dosage: HAVEN^T MEASURING THE AMOUNT BECAUSE PATIENT USING FINGER DIRECTLY ONCE A DAY
     Route: 061
     Dates: start: 20210809

REACTIONS (3)
  - Incorrect dose administered [Unknown]
  - Wrong technique in product usage process [Unknown]
  - Application site acne [Unknown]

NARRATIVE: CASE EVENT DATE: 2021
